FAERS Safety Report 18978916 (Version 5)
Quarter: 2021Q3

REPORT INFORMATION
  Report Type: Report from Study
  Country: AU (occurrence: AU)
  Receive Date: 20210308
  Receipt Date: 20210719
  Transmission Date: 20211014
  Serious: Yes (Other)
  Sender: FDA-Public Use
  Company Number: AU-JNJFOC-20201116637

PATIENT
  Age: 46 Year
  Sex: Female

DRUGS (3)
  1. REMICADE [Suspect]
     Active Substance: INFLIXIMAB
     Indication: RHEUMATOID ARTHRITIS
     Route: 042
     Dates: start: 202010
  2. METHOTREXATE. [Suspect]
     Active Substance: METHOTREXATE
     Indication: PRODUCT USED FOR UNKNOWN INDICATION
     Route: 058
  3. FOLIC ACID. [Suspect]
     Active Substance: FOLIC ACID
     Indication: PRODUCT USED FOR UNKNOWN INDICATION
     Route: 065

REACTIONS (20)
  - Fatigue [Not Recovered/Not Resolved]
  - Vulvovaginal candidiasis [Unknown]
  - Product use issue [Unknown]
  - Suicidal ideation [Unknown]
  - Mental disorder [Not Recovered/Not Resolved]
  - Migraine [Recovered/Resolved]
  - Neuropathy peripheral [Not Recovered/Not Resolved]
  - Skin haemorrhage [Recovered/Resolved]
  - Therapeutic product effect decreased [Unknown]
  - Decreased appetite [Not Recovered/Not Resolved]
  - Diarrhoea [Recovered/Resolved]
  - Type 2 diabetes mellitus [Unknown]
  - Nausea [Not Recovered/Not Resolved]
  - Constipation [Unknown]
  - Animal scratch [Unknown]
  - Dry mouth [Not Recovered/Not Resolved]
  - Arthralgia [Recovering/Resolving]
  - Nail disorder [Not Recovered/Not Resolved]
  - Off label use [Unknown]
  - Asthma [Unknown]

NARRATIVE: CASE EVENT DATE: 2020
